FAERS Safety Report 8157499 (Version 5)
Quarter: 2013Q4

REPORT INFORMATION
  Report Type: Report from Study
  Country: DE (occurrence: DE)
  Receive Date: 20110927
  Receipt Date: 20131217
  Transmission Date: 20140711
  Serious: Yes (Death, Hospitalization)
  Sender: FDA-Public Use
  Company Number: DE-BRISTOL-MYERS SQUIBB COMPANY-16081853

PATIENT
  Age: 77 Year
  Sex: Male
  Weight: 106 kg

DRUGS (4)
  1. IPILIMUMAB [Suspect]
     Indication: MALIGNANT MELANOMA
     Route: 042
     Dates: start: 20110624, end: 20110826
  2. CYMBALTA [Concomitant]
     Indication: DEPRESSION
     Route: 048
  3. DICLOFENAC [Concomitant]
     Indication: PAIN
     Route: 048
  4. TILIDINE [Concomitant]
     Indication: PAIN
     Route: 048

REACTIONS (2)
  - Malignant neoplasm progression [Fatal]
  - Pain in extremity [Unknown]
